FAERS Safety Report 11050823 (Version 1)
Quarter: 2015Q2

REPORT INFORMATION
  Report Type: Spontaneous
  Country: KR (occurrence: KR)
  Receive Date: 20150421
  Receipt Date: 20150421
  Transmission Date: 20150821
  Serious: Yes (Other)
  Sender: FDA-Public Use
  Company Number: KR-JNJFOC-20150412863

PATIENT

DRUGS (1)
  1. INFLIXIMAB, RECOMBINANT [Suspect]
     Active Substance: INFLIXIMAB
     Indication: GRAFT VERSUS HOST DISEASE IN GASTROINTESTINAL TRACT
     Route: 042

REACTIONS (6)
  - Product use issue [Unknown]
  - Cytomegalovirus infection [Recovering/Resolving]
  - Bacterial infection [Recovering/Resolving]
  - Therapeutic response unexpected [Unknown]
  - Drug effect incomplete [Unknown]
  - Respiratory tract infection viral [Recovering/Resolving]
